FAERS Safety Report 7490516-6 (Version None)
Quarter: 2011Q2

REPORT INFORMATION
  Report Type: 
  Country: None (occurrence: None)
  Receive Date: 20110517
  Receipt Date: 20110517
  Transmission Date: 20111010
  Serious: No
  Sender: FDA-Public Use
  Company Number: None

PATIENT
  Age: 31 Year
  Sex: Female
  Weight: 58.9676 kg

DRUGS (2)
  1. INSULIN [Suspect]
     Indication: HYPOGLYCAEMIA
     Dosage: 80 UNITS HS SUBQ
     Route: 058
     Dates: start: 20110318
  2. REGULAR INSULIN [Suspect]
     Dosage: SLIDING SCALE PRN SUBQ
     Route: 058
     Dates: start: 20110318

REACTIONS (2)
  - INAPPROPRIATE SCHEDULE OF DRUG ADMINISTRATION [None]
  - HYPOGLYCAEMIA [None]
